FAERS Safety Report 6257149-0 (Version None)
Quarter: 2009Q3

REPORT INFORMATION
  Report Type: 
  Country: None (occurrence: None)
  Receive Date: 20090701
  Receipt Date: 20090701
  Transmission Date: 20100115
  Serious: Yes (Hospitalization)
  Sender: FDA-Public Use
  Company Number: None

PATIENT
  Age: 64 Year
  Sex: Female

DRUGS (6)
  1. CARBOPLATIN [Suspect]
     Indication: BREAST CANCER
     Dosage: 700 MG, INTRAVENOUS
     Route: 042
     Dates: start: 20090318, end: 20090318
  2. RANIPLEX [Concomitant]
  3. TAXOL [Concomitant]
  4. POLARAMINE [Concomitant]
  5. SOLU-MEDROL [Concomitant]
  6. ONDANSETRON HCL [Concomitant]

REACTIONS (4)
  - ERYTHEMA [None]
  - FEELING HOT [None]
  - HYPERSENSITIVITY [None]
  - NAUSEA [None]
